FAERS Safety Report 18673363 (Version 2)
Quarter: 2021Q1

REPORT INFORMATION
  Report Type: Report from Study
  Country: US (occurrence: US)
  Receive Date: 20201228
  Receipt Date: 20210108
  Transmission Date: 20210419
  Serious: Yes (Death)
  Sender: FDA-Public Use
  Company Number: US-PFIZER INC-2020459412

PATIENT
  Age: 53 Year
  Sex: Male
  Weight: 98.1 kg

DRUGS (14)
  1. BLINDED BNT162B1 [Suspect]
     Active Substance: ABDAVOMERAN
     Dosage: SINGLE DOSE
     Route: 030
     Dates: start: 20200910, end: 20200910
  2. PLACEBO [Suspect]
     Active Substance: UNSPECIFIED INGREDIENT
     Dosage: SINGLE DOSE
     Route: 030
     Dates: start: 20200910, end: 20200910
  3. BLINDED BNT162B2 [Suspect]
     Active Substance: TOZINAMERAN
     Dosage: SINGLE DOSE
     Route: 030
     Dates: start: 20200910, end: 20200910
  4. ALCOHOL. [Suspect]
     Active Substance: ALCOHOL
     Indication: SUBSTANCE USE
     Dosage: UNK
  5. BLINDED BNT162B1 [Suspect]
     Active Substance: ABDAVOMERAN
     Indication: IMMUNISATION
     Dosage: SINGLE DOSE
     Route: 030
     Dates: start: 20201002, end: 20201002
  6. XANAX [Concomitant]
     Active Substance: ALPRAZOLAM
     Indication: ANXIETY
     Dosage: UNK
     Dates: start: 20181015
  7. BLINDED BNT162B2 [Suspect]
     Active Substance: TOZINAMERAN
     Indication: IMMUNISATION
     Dosage: SINGLE DOSE
     Route: 030
     Dates: start: 20201002, end: 20201002
  8. BNT?162A1. [Suspect]
     Active Substance: BNT-162A1
     Dosage: SINGLE DOSE
     Route: 030
     Dates: start: 20200910, end: 20200910
  9. PLACEBO [Suspect]
     Active Substance: UNSPECIFIED INGREDIENT
     Indication: IMMUNISATION
     Dosage: SINGLE DOSE
     Route: 030
     Dates: start: 20201002, end: 20201002
  10. FENTANYL CITRATE. [Suspect]
     Active Substance: FENTANYL CITRATE
     Indication: SUBSTANCE USE
     Dosage: UNK
  11. ALPRAZOLAM. [Suspect]
     Active Substance: ALPRAZOLAM
     Indication: SUBSTANCE USE
     Dosage: UNK
  12. BNT?162A1. [Suspect]
     Active Substance: BNT-162A1
     Indication: IMMUNISATION
     Dosage: SINGLE DOSE
     Route: 030
     Dates: start: 20201002, end: 20201002
  13. BLINDED BNT162C2 [Suspect]
     Active Substance: PIDACMERAN
     Indication: IMMUNISATION
     Dosage: SINGLE DOSE
     Route: 030
     Dates: start: 20201002, end: 20201002
  14. BLINDED BNT162C2 [Suspect]
     Active Substance: PIDACMERAN
     Dosage: SINGLE DOSE
     Route: 030
     Dates: start: 20200910, end: 20200910

REACTIONS (2)
  - Overdose [Fatal]
  - Respiratory arrest [Fatal]

NARRATIVE: CASE EVENT DATE: 20201102
